FAERS Safety Report 6985462-8 (Version None)
Quarter: 2010Q3

REPORT INFORMATION
  Report Type: 
  Country: None (occurrence: None)
  Receive Date: 20100915
  Receipt Date: 20100913
  Transmission Date: 20110219
  Serious: Yes (Other)
  Sender: FDA-Public Use
  Company Number: A0880700A

PATIENT
  Sex: Male
  Weight: 92 kg

DRUGS (17)
  1. TOSITUMOMAB [Suspect]
     Indication: NON-HODGKIN'S LYMPHOMA
     Dosage: 450MG SINGLE DOSE
     Route: 042
     Dates: start: 20050930, end: 20050930
  2. TOSITUMOMAB [Suspect]
     Dosage: 5MCI SINGLE DOSE
     Route: 042
     Dates: start: 20050930, end: 20050930
  3. TOSITUMOMAB [Suspect]
     Dosage: 450MG SINGLE DOSE
     Route: 042
     Dates: start: 20051007, end: 20051007
  4. TOSITUMOMAB [Suspect]
     Dosage: 128.7MCI SINGLE DOSE
     Route: 042
     Dates: start: 20051007, end: 20051007
  5. CYCLOPHOSPHAMIDE [Suspect]
  6. VINCRISTINE [Suspect]
  7. ADRIAMYCIN PFS [Suspect]
  8. PREDNISONE [Suspect]
  9. ETOPOSIDE [Suspect]
  10. CYTARABINE [Suspect]
  11. CISPLATIN [Suspect]
  12. MELPHALAN HYDROCHLORIDE [Suspect]
  13. CARMUSTINE [Suspect]
  14. ACYCLOVIR SODIUM [Concomitant]
  15. AZITHROMYCIN [Concomitant]
  16. ITRACONAZOLE [Concomitant]
  17. RIBAVIRIN [Concomitant]

REACTIONS (1)
  - SEBACEOUS CARCINOMA [None]
